FAERS Safety Report 7902226-9 (Version None)
Quarter: 2011Q4

REPORT INFORMATION
  Report Type: 
  Country: None (occurrence: None)
  Receive Date: 20111108
  Receipt Date: 20111101
  Transmission Date: 20120403
  Serious: No
  Sender: FDA-Public Use
  Company Number: US-CEPHALON-2011005403

PATIENT
  Sex: Female

DRUGS (3)
  1. NITROFURAN [Concomitant]
  2. NUVIGIL [Suspect]
     Route: 064
  3. VITAFOL [Concomitant]

REACTIONS (1)
  - CONGENITAL GENITOURINARY ABNORMALITY [None]
